FAERS Safety Report 8695885 (Version 2)
Quarter: 2013Q4

REPORT INFORMATION
  Report Type: Spontaneous
  Country: US (occurrence: US)
  Receive Date: 20120801
  Receipt Date: 20131101
  Transmission Date: 20140711
  Serious: No
  Sender: FDA-Public Use
  Company Number: US-009507513-1207USA009936

PATIENT
  Sex: Female

DRUGS (9)
  1. ZOCOR [Suspect]
     Route: 048
  2. LIPITOR [Suspect]
  3. DOXYCYCLINE [Suspect]
  4. MACROBID (CLARITHROMYCIN) [Suspect]
  5. DEMEROL [Suspect]
  6. VIOXX [Suspect]
  7. NITROFURANTOIN [Suspect]
  8. CIPROFLOXACIN [Suspect]
  9. LEVAQUIN [Suspect]

REACTIONS (2)
  - Drug intolerance [Unknown]
  - Paraesthesia [Unknown]
